FAERS Safety Report 23980696 (Version 2)
Quarter: 2024Q3

REPORT INFORMATION
  Report Type: Spontaneous
  Country: JP (occurrence: JP)
  Receive Date: 20240617
  Receipt Date: 20240703
  Transmission Date: 20241017
  Serious: Yes (Hospitalization)
  Sender: TEVA
  Company Number: JP-TEVA-VS-3209003

PATIENT
  Age: 81 Year
  Sex: Female

DRUGS (1)
  1. CLOPIDOGREL [Suspect]
     Active Substance: CLOPIDOGREL BISULFATE
     Indication: Carotid artery stenosis
     Route: 048

REACTIONS (6)
  - Post procedural haemorrhage [Recovered/Resolved]
  - Arterial disorder [Unknown]
  - Anaemia [Unknown]
  - Extravasation blood [Unknown]
  - Haematoma [Unknown]
  - Chest wall mass [Unknown]
